FAERS Safety Report 6466522-7 (Version None)
Quarter: 2009Q4

REPORT INFORMATION
  Report Type: 
  Country: None (occurrence: None)
  Receive Date: 20091202
  Receipt Date: 20091130
  Transmission Date: 20100525
  Serious: No
  Sender: FDA-Public Use
  Company Number: US-BAYER-200930905NA

PATIENT
  Age: 22 Year
  Sex: Female
  Weight: 63 kg

DRUGS (4)
  1. MIRENA [Suspect]
     Indication: CONTRACEPTION
     Dosage: CONTINUOUS
     Route: 015
     Dates: start: 20080301
  2. YAZ [Suspect]
     Indication: OVARIAN CYST
  3. YASMIN [Suspect]
     Indication: OVARIAN CYST
  4. LOESTRIN 1.5/30 [Concomitant]
     Indication: OVARIAN CYST
     Route: 048

REACTIONS (12)
  - ABDOMINAL PAIN [None]
  - AMENORRHOEA [None]
  - ANXIETY [None]
  - DEPRESSION [None]
  - MEDICAL DEVICE COMPLICATION [None]
  - MOOD SWINGS [None]
  - NAUSEA [None]
  - OVARIAN CYST [None]
  - PAIN IN EXTREMITY [None]
  - PELVIC PAIN [None]
  - PROCEDURAL PAIN [None]
  - VAGINAL HAEMORRHAGE [None]
